FAERS Safety Report 7423255-8 (Version None)
Quarter: 2011Q2

REPORT INFORMATION
  Report Type: 
  Country: None (occurrence: None)
  Receive Date: 20110419
  Receipt Date: 20110413
  Transmission Date: 20111010
  Serious: Yes (Hospitalization)
  Sender: FDA-Public Use
  Company Number: US-PFIZER INC-2008098089

PATIENT
  Age: 6 Year
  Sex: Male

DRUGS (4)
  1. SERTRALINE HYDROCHLORIDE [Suspect]
  2. CAFFEINE [Concomitant]
  3. DEXTROMETHORPHAN HBR [Interacting]
     Dosage: 40 MG/KG, UNK
     Route: 048
  4. FENTANYL [Concomitant]

REACTIONS (4)
  - OVERDOSE [None]
  - SEROTONIN SYNDROME [None]
  - DRUG INTERACTION [None]
  - DRUG LEVEL ABOVE THERAPEUTIC [None]
